FAERS Safety Report 12357772 (Version 1)
Quarter: 2016Q2

REPORT INFORMATION
  Report Type: Spontaneous
  Country: US (occurrence: US)
  Receive Date: 20160512
  Receipt Date: 20160512
  Transmission Date: 20160815
  Serious: Yes (Other)
  Sender: FDA-Public Use
  Company Number: US-SHIRE-US201605527

PATIENT
  Age: 60 Year
  Sex: Male

DRUGS (1)
  1. FIRAZYR [Suspect]
     Active Substance: ICATIBANT ACETATE
     Indication: HEREDITARY ANGIOEDEMA
     Dosage: 30 MG, AS REQ^D
     Route: 058
     Dates: start: 20140606

REACTIONS (5)
  - Swollen tongue [Unknown]
  - Pain [Unknown]
  - Dysphonia [Unknown]
  - Lip swelling [Unknown]
  - Localised oedema [Unknown]

NARRATIVE: CASE EVENT DATE: 20160418
